FAERS Safety Report 12200278 (Version 1)
Quarter: 2016Q1

REPORT INFORMATION
  Report Type: Report from Study
  Country: US (occurrence: US)
  Receive Date: 20160322
  Receipt Date: 20160322
  Transmission Date: 20160526
  Serious: Yes (Death, Other)
  Sender: FDA-Public Use
  Company Number: US-CELGENE-163-21880-12063363

PATIENT

DRUGS (7)
  1. REVLIMID [Suspect]
     Active Substance: LENALIDOMIDE
     Route: 048
  2. REVLIMID [Suspect]
     Active Substance: LENALIDOMIDE
     Indication: ACUTE MYELOID LEUKAEMIA
     Dosage: 10MG-25MG
     Route: 048
  3. REVLIMID [Suspect]
     Active Substance: LENALIDOMIDE
     Dosage: 10MG-25MG
     Route: 048
  4. CYTARABINE. [Suspect]
     Active Substance: CYTARABINE
     Route: 041
  5. REVLIMID [Suspect]
     Active Substance: LENALIDOMIDE
     Route: 048
  6. CYTARABINE. [Suspect]
     Active Substance: CYTARABINE
     Indication: ACUTE MYELOID LEUKAEMIA
     Route: 041
  7. CYTARABINE. [Suspect]
     Active Substance: CYTARABINE
     Route: 041

REACTIONS (22)
  - Mucosal inflammation [Unknown]
  - Device related infection [Unknown]
  - Hypokalaemia [Unknown]
  - Nausea [Unknown]
  - Anaemia [Unknown]
  - Pneumonia [Unknown]
  - Rash maculo-papular [Unknown]
  - Hyperbilirubinaemia [Unknown]
  - Rash [Unknown]
  - Fatigue [Unknown]
  - Cytopenia [Unknown]
  - Fungal infection [Unknown]
  - Febrile neutropenia [Unknown]
  - Diarrhoea [Unknown]
  - Decreased appetite [Unknown]
  - Thrombocytopenia [Unknown]
  - Neutropenia [Unknown]
  - Liver function test abnormal [Unknown]
  - Pneumonitis [Unknown]
  - Aspartate aminotransferase increased [Unknown]
  - Electrolyte imbalance [Unknown]
  - Vomiting [Unknown]
